FAERS Safety Report 9519698 (Version 1)
Quarter: 2013Q3

REPORT INFORMATION
  Report Type: Spontaneous
  Country: US (occurrence: None)
  Receive Date: 20130911
  Receipt Date: 20130911
  Transmission Date: 20140515
  Serious: Yes (Other)
  Sender: FDA-Public Use
  Company Number: None

PATIENT
  Age: 49 Year
  Sex: Female
  Weight: 83.92 kg

DRUGS (1)
  1. BYDUREON [Suspect]
     Indication: DRUG THERAPY
     Route: 058
     Dates: start: 20130710, end: 20130905

REACTIONS (2)
  - Injection site nodule [None]
  - Injection site pain [None]
